FAERS Safety Report 6833077-4 (Version None)
Quarter: 2010Q3

REPORT INFORMATION
  Report Type: 
  Country: None (occurrence: None)
  Receive Date: 20100712
  Receipt Date: 20100609
  Transmission Date: 20110219
  Serious: No
  Sender: FDA-Public Use
  Company Number: US-BIOGENIDEC-2010BI017800

PATIENT
  Age: 55 Year
  Sex: Female

DRUGS (2)
  1. TYSABRI [Suspect]
     Indication: MULTIPLE SCLEROSIS
     Route: 042
     Dates: start: 20080213, end: 20080312
  2. TYSABRI [Suspect]
     Route: 042
     Dates: start: 20100128, end: 20100506

REACTIONS (6)
  - ARTHRALGIA [None]
  - HYPERSENSITIVITY [None]
  - INFECTIOUS MONONUCLEOSIS [None]
  - PLATELET COUNT DECREASED [None]
  - PYREXIA [None]
  - VIRAL INFECTION [None]
